FAERS Safety Report 9400123 (Version 2)
Quarter: 2013Q3

REPORT INFORMATION
  Report Type: Report from Study
  Country: ES (occurrence: ES)
  Receive Date: 20130715
  Receipt Date: 20130804
  Transmission Date: 20140515
  Serious: Yes (Hospitalization)
  Sender: FDA-Public Use
  Company Number: ES-ROCHE-1248338

PATIENT
  Age: 61 Year
  Sex: Male
  Weight: 78 kg

DRUGS (11)
  1. RIBAVIRIN [Suspect]
     Indication: HEPATITIS C
     Route: 048
     Dates: start: 20130624
  2. BI 207127 [Suspect]
     Indication: HEPATITIS C
     Route: 048
     Dates: start: 20130624
  3. BI 201335 [Suspect]
     Indication: HEPATITIS C
     Route: 048
     Dates: start: 20130624
  4. AMERIDE [Concomitant]
     Route: 048
     Dates: start: 20111024
  5. SUMIAL [Concomitant]
     Route: 048
     Dates: start: 20100120
  6. OMEPRAZOLE [Concomitant]
     Route: 048
  7. TAMSULOSINA [Concomitant]
     Route: 048
     Dates: start: 20110801
  8. HUMULIN [Concomitant]
     Dosage: 125 MG/5ML
     Route: 065
     Dates: start: 20130701, end: 20130704
  9. SEGURIL [Concomitant]
     Route: 065
  10. CEFTRIAXONE [Concomitant]
     Route: 065
     Dates: start: 20130718
  11. NOVORAPID [Concomitant]
     Route: 065
     Dates: start: 20130720

REACTIONS (3)
  - Hepatic encephalopathy [Recovered/Resolved]
  - Hypokalaemia [Not Recovered/Not Resolved]
  - Upper gastrointestinal haemorrhage [Not Recovered/Not Resolved]
